FAERS Safety Report 12443109 (Version 1)
Quarter: 2016Q2

REPORT INFORMATION
  Report Type: Spontaneous
  Country: US (occurrence: US)
  Receive Date: 20160607
  Receipt Date: 20160607
  Transmission Date: 20160815
  Serious: Yes (Other)
  Sender: FDA-Public Use
  Company Number: US-CELGENEUS-USA-2015116557

PATIENT

DRUGS (12)
  1. GEMCITABINE [Suspect]
     Active Substance: GEMCITABINE\GEMCITABINE HYDROCHLORIDE
     Indication: LYMPHOMA
     Route: 041
  2. VIDAZA [Suspect]
     Active Substance: AZACITIDINE
     Indication: LYMPHOMA
     Dosage: 15-35 MG/M2
     Route: 041
  3. BUSULFAN. [Suspect]
     Active Substance: BUSULFAN
     Indication: LYMPHOMA
     Dosage: AUC 4000
     Route: 041
  4. DEXAMETHASONE. [Concomitant]
     Active Substance: DEXAMETHASONE
     Indication: SUPPORTIVE CARE
     Route: 041
  5. SUPERSATURATED CALCIUM/PHOSPHATE [Concomitant]
     Indication: DENTAL DISORDER PROPHYLAXIS
     Route: 065
  6. MELPHALAN [Suspect]
     Active Substance: MELPHALAN
     Indication: LYMPHOMA
     Route: 065
  7. PALIFERMIN [Concomitant]
     Active Substance: PALIFERMIN
     Indication: DENTAL DISORDER PROPHYLAXIS
     Route: 065
  8. VORINOSTAT [Suspect]
     Active Substance: VORINOSTAT
     Indication: LYMPHOMA
     Route: 048
  9. PHENYTOIN. [Concomitant]
     Active Substance: PHENYTOIN
     Indication: SUPPORTIVE CARE
     Dosage: 300-600 MG
     Route: 065
  10. GEMCITABINE [Suspect]
     Active Substance: GEMCITABINE\GEMCITABINE HYDROCHLORIDE
     Route: 041
  11. GLUTAMINE [Concomitant]
     Active Substance: GLUTAMINE
     Indication: DENTAL DISORDER PROPHYLAXIS
     Route: 065
  12. RITUXIMAB [Suspect]
     Active Substance: RITUXIMAB
     Indication: LYMPHOMA
     Route: 065

REACTIONS (12)
  - Transaminases increased [Unknown]
  - Rash erythematous [Unknown]
  - Blood bilirubin increased [Unknown]
  - Clostridium difficile colitis [Unknown]
  - Dermatitis [Unknown]
  - Nephropathy toxic [Unknown]
  - Febrile neutropenia [Unknown]
  - Mucosal inflammation [Unknown]
  - Pneumonitis [Unknown]
  - Pneumonia cytomegaloviral [Unknown]
  - Diarrhoea [Unknown]
  - Escherichia bacteraemia [Unknown]
